FAERS Safety Report 17797677 (Version 11)
Quarter: 2021Q3

REPORT INFORMATION
  Report Type: Spontaneous
  Country: FR (occurrence: FR)
  Receive Date: 20200518
  Receipt Date: 20210921
  Transmission Date: 20211014
  Serious: Yes (Life-Threatening, Hospitalization, Other)
  Sender: FDA-Public Use
  Company Number: FR-MYLANLABS-2020M1048559

PATIENT
  Age: 52 Year
  Sex: Female

DRUGS (9)
  1. NEBIVOLOL                          /01339102/ [Concomitant]
     Active Substance: NEBIVOLOL
     Indication: HYPERTENSION
     Dosage: UNK
  2. LOPINAVIR/RITONAVIR [Suspect]
     Active Substance: LOPINAVIR\RITONAVIR
     Indication: COVID-19 PNEUMONIA
     Dosage: UNK
  3. PREDNISONE. [Suspect]
     Active Substance: PREDNISONE
     Indication: IMMUNOSUPPRESSANT DRUG THERAPY
  4. RITUXIMAB. [Suspect]
     Active Substance: RITUXIMAB
     Dosage: 375 MILLIGRAM/SQ. METER, Q28D (375 MG/M2 WEEKLY FOR 4 WEEKS)
     Route: 051
     Dates: start: 201910
  5. HYDROXYCHLOROQUINE SULFATE. [Suspect]
     Active Substance: HYDROXYCHLOROQUINE SULFATE
     Dosage: 200 MILLIGRAM, Q8H
     Dates: start: 2020, end: 2020
  6. RITUXIMAB. [Suspect]
     Active Substance: RITUXIMAB
     Indication: IMMUNOSUPPRESSANT DRUG THERAPY
     Dosage: 500 MG (MAINTENANCE THERAPY), SINGLE DOSE
     Route: 065
     Dates: start: 20200305
  7. PREDNISONE. [Suspect]
     Active Substance: PREDNISONE
     Indication: GRANULOMATOSIS WITH POLYANGIITIS
     Dosage: 15 MILLIGRAM, QD
     Route: 065
  8. RITUXIMAB. [Suspect]
     Active Substance: RITUXIMAB
     Indication: GRANULOMATOSIS WITH POLYANGIITIS
     Dosage: 375 MG/M2 WEEKLY FOR 4 WEEKS
     Route: 051
     Dates: start: 201910
  9. HYDROXYCHLOROQUINE SULFATE. [Suspect]
     Active Substance: HYDROXYCHLOROQUINE SULFATE
     Indication: COVID-19
     Dosage: 200 MG/8 HOUR FOR 10 DAYS FROM DAY #19
     Dates: start: 20200325

REACTIONS (14)
  - Myalgia [Recovering/Resolving]
  - Acute respiratory distress syndrome [Recovering/Resolving]
  - Off label use [Unknown]
  - Therapeutic response unexpected [Unknown]
  - Cough [Recovering/Resolving]
  - Lung opacity [Recovering/Resolving]
  - COVID-19 [Recovered/Resolved]
  - Intentional product misuse [Unknown]
  - Interstitial lung disease [Recovering/Resolving]
  - COVID-19 pneumonia [Recovered/Resolved]
  - Headache [Recovering/Resolving]
  - Respiratory failure [Recovering/Resolving]
  - Coronavirus infection [Recovered/Resolved]
  - Pyrexia [Recovering/Resolving]

NARRATIVE: CASE EVENT DATE: 202003
